FAERS Safety Report 24361047 (Version 3)
Quarter: 2024Q4

REPORT INFORMATION
  Report Type: Report from Study
  Country: US (occurrence: US)
  Receive Date: 20240925
  Receipt Date: 20241104
  Transmission Date: 20250115
  Serious: Yes (Other)
  Sender: ABBVIE
  Company Number: US-ABBVIE-5933928

PATIENT
  Age: 77 Year
  Sex: Female
  Weight: 51.255 kg

DRUGS (1)
  1. SKYRIZI [Suspect]
     Active Substance: RISANKIZUMAB-RZAA
     Indication: Crohn^s disease
     Route: 058
     Dates: start: 20240426

REACTIONS (2)
  - Cataract [Recovered/Resolved]
  - Intentional device misuse [Not Recovered/Not Resolved]

NARRATIVE: CASE EVENT DATE: 20240101
